FAERS Safety Report 5871073-4 (Version None)
Quarter: 2008Q3

REPORT INFORMATION
  Report Type: 
  Country: None (occurrence: None)
  Receive Date: 20080904
  Receipt Date: 20080824
  Transmission Date: 20090109
  Serious: Yes (Other)
  Sender: FDA-Public Use
  Company Number: US-PFIZER INC-2007001124

PATIENT
  Sex: Female
  Weight: 51.7 kg

DRUGS (9)
  1. CHANTIX [Interacting]
     Indication: SMOKING CESSATION THERAPY
  2. LYRICA [Suspect]
     Indication: FIBROMYALGIA
     Dosage: FREQ:DAILY: EVERY DAY
     Dates: start: 20070101, end: 20070101
  3. ALPRAZOLAM [Interacting]
     Indication: ANXIETY
  4. ALPRAZOLAM [Interacting]
     Indication: PANIC DISORDER
  5. VERAPAMIL [Concomitant]
  6. ZETIA [Concomitant]
  7. ACIPHEX [Concomitant]
  8. HERBAL PREPARATION [Concomitant]
  9. FIORICET [Concomitant]

REACTIONS (12)
  - ANGINA PECTORIS [None]
  - BREAST PAIN [None]
  - BREAST SWELLING [None]
  - DEPRESSED MOOD [None]
  - DRUG INTERACTION [None]
  - DYSPNOEA [None]
  - HYPOAESTHESIA [None]
  - MUSCLE SPASMS [None]
  - PAIN [None]
  - PALPITATIONS [None]
  - PSYCHOTIC DISORDER [None]
  - SUICIDAL IDEATION [None]
